FAERS Safety Report 17703749 (Version 1)
Quarter: 2020Q2

REPORT INFORMATION
  Report Type: Spontaneous
  Country: FR (occurrence: FR)
  Receive Date: 20200424
  Receipt Date: 20200424
  Transmission Date: 20200714
  Serious: Yes (Life-Threatening, Hospitalization, Other)
  Sender: FDA-Public Use
  Company Number: FR-ALVOGEN-2020-ALVOGEN-108210

PATIENT
  Age: 24 Year
  Sex: Male

DRUGS (10)
  1. VOGALENE [Suspect]
     Active Substance: METOPIMAZINE
     Indication: SUICIDE ATTEMPT
     Dosage: BETWEEN 3:30 P.M. AND 7:30 P.M., THE PATIENT INGESTED IN TOTAL  (VOGALENE 7.5MG TABLET)
     Route: 048
  2. VALIUM [Suspect]
     Active Substance: DIAZEPAM
     Indication: ANXIOLYTIC THERAPY
     Dosage: PROGRESSIVE DECREASE
  3. BISOPROLOL [Suspect]
     Active Substance: BISOPROLOL
     Indication: SUICIDE ATTEMPT
     Dosage: BETWEEN 3:30 P.M. AND 7:30 P.M., THE PATIENT INGESTED IN TOTAL
     Route: 048
  4. FLECAINIDE [Suspect]
     Active Substance: FLECAINIDE
     Indication: SUICIDE ATTEMPT
     Dosage: BETWEEN 3:30 P.M. AND 7:30 P.M., THE PATIENT INGESTED IN TOTAL; SLOW-RELEASE
     Route: 048
  5. PARACETAMOL [Suspect]
     Active Substance: ACETAMINOPHEN
     Indication: SUICIDE ATTEMPT
     Dosage: BETWEEN 3:30 P.M. AND 7:30 P.M., THE PATIENT INGESTED IN TOTAL
     Route: 048
  6. CYMBALTA [Suspect]
     Active Substance: DULOXETINE HYDROCHLORIDE
     Indication: SUICIDE ATTEMPT
     Dosage: IN THE MORNING
  7. VALIUM [Suspect]
     Active Substance: DIAZEPAM
     Indication: ANXIOLYTIC THERAPY
     Dosage: WITH CURRENT DOSE OF 10 MG/D
     Route: 048
  8. CYMBALTA [Suspect]
     Active Substance: DULOXETINE HYDROCHLORIDE
     Indication: SUICIDE ATTEMPT
     Dosage: BETWEEN 3:30 P.M. AND 7:30 P.M., THE PATIENT INGESTED IN TOTAL
     Route: 048
  9. LAMALINE (ACETAMINOPHEN\CAFFEINE\OPIUM) [Suspect]
     Active Substance: ACETAMINOPHEN\CAFFEINE\OPIUM
     Indication: SUICIDE ATTEMPT
     Dosage: BETWEEN 3:30 P.M. AND 7:30 P.M., THE PATIENT INGESTED IN TOTAL
     Route: 048
  10. VALIUM [Suspect]
     Active Substance: DIAZEPAM
     Indication: ANXIOLYTIC THERAPY
     Dosage: BETWEEN 3:30 P.M. AND 7:30 P.M., THE PATIENT INGESTED IN TOTAL: 700 MG DIAZEPAM
     Route: 048

REACTIONS (21)
  - Ventricular tachycardia [Recovered/Resolved]
  - Electrocardiogram PR prolongation [Recovered/Resolved]
  - Pupillary disorder [Recovered/Resolved]
  - Coma [Recovered/Resolved]
  - Toxicity to various agents [Unknown]
  - Ejection fraction decreased [Recovered/Resolved]
  - Tremor [Recovered/Resolved]
  - Electrocardiogram QT prolonged [Recovered/Resolved]
  - Respiration abnormal [Recovered/Resolved]
  - Intentional overdose [Unknown]
  - Bezoar [Recovered/Resolved]
  - Bundle branch block right [Recovered/Resolved]
  - Hypotension [Recovered/Resolved]
  - Hypothermia [Recovered/Resolved]
  - Electrocardiogram QRS complex prolonged [Recovered/Resolved]
  - Hypertonia [Recovered/Resolved]
  - Atrioventricular block first degree [Recovered/Resolved]
  - Respiratory acidosis [Recovered/Resolved]
  - Reflexes abnormal [Recovered/Resolved]
  - Pneumonia aspiration [Unknown]
  - Bradycardia [Recovered/Resolved]
